FAERS Safety Report 7803977-7 (Version None)
Quarter: 2011Q4

REPORT INFORMATION
  Report Type: 
  Country: None (occurrence: None)
  Receive Date: 20111010
  Receipt Date: 20111004
  Transmission Date: 20120403
  Serious: Yes (Death, Other)
  Sender: FDA-Public Use
  Company Number: GB-JNJFOC-20110904969

PATIENT
  Sex: Female

DRUGS (3)
  1. ATENOLOL [Concomitant]
     Route: 065
  2. DEXAMETHASONE [Concomitant]
     Indication: DECREASED APPETITE
     Route: 065
     Dates: start: 20110714
  3. DOXORUBICIN HCL [Suspect]
     Indication: OVARIAN CANCER METASTATIC
     Dosage: PRESCRIBED 60 MG (40 MG/M2), HOWEVER 120 MG WAS PUT INTO THE BAG. HAD TOTAL 310 ML OF FLUID IN BAG
     Route: 042
     Dates: start: 20110805, end: 20110805

REACTIONS (5)
  - PANCYTOPENIA [None]
  - GENERAL PHYSICAL HEALTH DETERIORATION [None]
  - RENAL FAILURE [None]
  - NEUTROPENIC SEPSIS [None]
  - INCORRECT DOSE ADMINISTERED [None]
